FAERS Safety Report 6557648-8 (Version None)
Quarter: 2010Q1

REPORT INFORMATION
  Report Type: 
  Country: None (occurrence: None)
  Receive Date: 20100129
  Receipt Date: 20100119
  Transmission Date: 20100710
  Serious: Yes (Hospitalization)
  Sender: FDA-Public Use
  Company Number: RU-SANOFI-AVENTIS-2010SA004304

PATIENT
  Age: 73 Year
  Sex: Male

DRUGS (2)
  1. NALIDIXIC ACID [Suspect]
     Indication: URETHRITIS
     Route: 048
     Dates: start: 20080507, end: 20080521
  2. WARFARIN SODIUM [Suspect]
     Indication: THROMBOSIS PROPHYLAXIS
     Route: 048
     Dates: start: 20030101

REACTIONS (5)
  - DIZZINESS [None]
  - DRUG INTERACTION [None]
  - FATIGUE [None]
  - GASTROINTESTINAL HAEMORRHAGE [None]
  - MELAENA [None]
